FAERS Safety Report 5367432-9 (Version None)
Quarter: 2007Q2

REPORT INFORMATION
  Report Type: 
  Country: None (occurrence: None)
  Receive Date: 20070622
  Receipt Date: 20060816
  Transmission Date: 20071010
  Serious: No
  Sender: FDA-Public Use
  Company Number: US-ASTRAZENECA-2006UW16325

PATIENT
  Age: 67 Year
  Sex: Female
  Weight: 54.4 kg

DRUGS (3)
  1. PULMICORT RESPULES [Suspect]
     Indication: SINUSITIS
     Route: 055
     Dates: start: 20060701
  2. IRESSA [Concomitant]
     Route: 048
  3. LOTS OF MEDICATIONS [Concomitant]

REACTIONS (1)
  - HAEMOPTYSIS [None]
